FAERS Safety Report 15356480 (Version 2)
Quarter: 2018Q3

REPORT INFORMATION
  Report Type: Spontaneous
  Country: JP (occurrence: JP)
  Receive Date: 20180906
  Receipt Date: 20180925
  Transmission Date: 20181010
  Serious: Yes (Other)
  Sender: FDA-Public Use
  Company Number: JP-MYLANLABS-2018M1064960

PATIENT
  Age: 79 Year
  Sex: Male

DRUGS (2)
  1. CARBOPLATIN. [Suspect]
     Active Substance: CARBOPLATIN
     Indication: HYPOPHARYNGEAL CANCER STAGE IV
     Dosage: STARTED ON THE 19TH DAY AFTER THE SURGERY; 2 COURSES.
     Route: 065
  2. FLUOROURACIL. [Suspect]
     Active Substance: FLUOROURACIL
     Indication: HYPOPHARYNGEAL CANCER STAGE IV
     Dosage: STARTED ON THE 19TH DAY AFTER THE SURGERY; 2 COURSES
     Route: 065

REACTIONS (6)
  - Dysphagia [Recovering/Resolving]
  - Peritonitis [Recovering/Resolving]
  - Pelvic abscess [Recovering/Resolving]
  - Portal venous gas [Recovered/Resolved]
  - Pneumatosis intestinalis [Recovered/Resolved]
  - Enteritis [Recovering/Resolving]
